FAERS Safety Report 10683804 (Version 2)
Quarter: 2015Q1

REPORT INFORMATION
  Report Type: Spontaneous
  Country: AW (occurrence: AW)
  Receive Date: 20141230
  Receipt Date: 20150122
  Transmission Date: 20150720
  Serious: Yes (Hospitalization, Other)
  Sender: FDA-Public Use
  Company Number: CA-PFIZER INC-2014355706

PATIENT
  Age: 66 Year
  Sex: Female

DRUGS (6)
  1. ADVIL [Suspect]
     Active Substance: IBUPROFEN
     Indication: MYALGIA
     Dosage: 400 MG, 2X/WEEK
     Dates: start: 2014, end: 201411
  2. ADVIL [Suspect]
     Active Substance: IBUPROFEN
     Indication: BACK PAIN
  3. ADVIL [Suspect]
     Active Substance: IBUPROFEN
     Indication: MYALGIA
     Dosage: 400 MG (2X200 MG), 1X/DAY
     Dates: start: 2009, end: 2013
  4. ADVIL [Suspect]
     Active Substance: IBUPROFEN
     Indication: BACK PAIN
  5. ADVIL [Suspect]
     Active Substance: IBUPROFEN
     Indication: MIGRAINE
  6. ADVIL [Suspect]
     Active Substance: IBUPROFEN
     Indication: MIGRAINE

REACTIONS (7)
  - Anaemia [Recovered/Resolved]
  - Gastric ulcer [Recovered/Resolved]
  - Upper gastrointestinal haemorrhage [Recovered/Resolved]
  - Haemoglobin decreased [Recovered/Resolved]
  - Blood urea increased [Unknown]
  - Hypotension [Unknown]
  - Haematemesis [Unknown]

NARRATIVE: CASE EVENT DATE: 20141120
